FAERS Safety Report 8429322 (Version 3)
Quarter: 2014Q1

REPORT INFORMATION
  Report Type: Report from Study
  Country: BR (occurrence: BR)
  Receive Date: 20120227
  Receipt Date: 20140120
  Transmission Date: 20141002
  Serious: Yes (Hospitalization, Other)
  Sender: FDA-Public Use
  Company Number: PHHO2012BR003309

PATIENT
  Age: 28 Year
  Sex: Male
  Weight: 90 kg

DRUGS (1)
  1. FTY 720 [Suspect]
     Indication: MULTIPLE SCLEROSIS
     Dosage: 0.5 MG, QD
     Route: 048
     Dates: start: 20110509, end: 20120224

REACTIONS (1)
  - Atrial fibrillation [Recovered/Resolved]
